FAERS Safety Report 8965961 (Version 1)
Quarter: 2012Q4

REPORT INFORMATION
  Report Type: 
  Country: US (occurrence: US)
  Receive Date: 20121217
  Receipt Date: 20121217
  Transmission Date: 20130627
  Serious: No
  Sender: FDA-Public Use
  Company Number: US-ABBOTT-12P-163-0942117-00

PATIENT
  Sex: Male
  Weight: 81.72 kg

DRUGS (8)
  1. TRILIPIX [Suspect]
     Indication: BLOOD TRIGLYCERIDES
     Route: 048
  2. NIASPAN (COATED) 500MG [Suspect]
     Indication: BLOOD TRIGLYCERIDES
     Route: 048
  3. PREVACID [Concomitant]
     Indication: GASTROOESOPHAGEAL REFLUX DISEASE
  4. ANDROGEL [Concomitant]
     Indication: BLOOD TESTOSTERONE DECREASED
  5. FLOMAX [Concomitant]
     Indication: PRODUCT USED FOR UNKNOWN INDICATION
  6. VYTORIN [Concomitant]
     Indication: PRODUCT USED FOR UNKNOWN INDICATION
  7. EPRINOL [Concomitant]
     Indication: HYPERTENSION
  8. UNKNOWN NASAL SPRAY [Concomitant]
     Indication: PRODUCT USED FOR UNKNOWN INDICATION

REACTIONS (3)
  - Diarrhoea [Not Recovered/Not Resolved]
  - Flushing [Not Recovered/Not Resolved]
  - Erythema [Not Recovered/Not Resolved]
